FAERS Safety Report 9683057 (Version 1)
Quarter: 2013Q4

REPORT INFORMATION
  Report Type: Spontaneous
  Country: US (occurrence: US)
  Receive Date: 20131112
  Receipt Date: 20131112
  Transmission Date: 20140711
  Serious: No
  Sender: FDA-Public Use
  Company Number: US-PFIZER INC-2013317640

PATIENT
  Age: 68 Year
  Sex: Male

DRUGS (7)
  1. LIPITOR [Suspect]
     Dosage: UNK
  2. LOPID [Suspect]
     Dosage: UNK
  3. INDERAL [Suspect]
     Dosage: UNK
  4. TEGRETOL [Suspect]
     Dosage: UNK
  5. CODEINE [Suspect]
     Dosage: UNK
  6. ZETIA [Suspect]
     Dosage: UNK
  7. CRESTOR [Suspect]
     Dosage: UNK

REACTIONS (1)
  - Drug hypersensitivity [Unknown]
